FAERS Safety Report 18300929 (Version 2)
Quarter: 2020Q4

REPORT INFORMATION
  Report Type: Report from Study
  Country: US (occurrence: US)
  Receive Date: 20200923
  Receipt Date: 20201201
  Transmission Date: 20210113
  Serious: Yes (Other)
  Sender: FDA-Public Use
  Company Number: US-INCYTE CORPORATION-2020IN009102

PATIENT

DRUGS (1)
  1. JAKAFI [Suspect]
     Active Substance: RUXOLITINIB
     Indication: ESSENTIAL THROMBOCYTHAEMIA
     Dosage: 15 MILLIGRAM, BID
     Route: 048

REACTIONS (14)
  - Haematemesis [Unknown]
  - Loss of consciousness [Unknown]
  - Transient ischaemic attack [Unknown]
  - Off label use [Unknown]
  - Vertigo [Unknown]
  - Nervous system disorder [Unknown]
  - Neck injury [Unknown]
  - Dizziness [Unknown]
  - Weight loss poor [Unknown]
  - Weight increased [Unknown]
  - Concussion [Unknown]
  - Head injury [Unknown]
  - Brain injury [Unknown]
  - Fatigue [Unknown]

NARRATIVE: CASE EVENT DATE: 202008
